FAERS Safety Report 6105852-5 (Version None)
Quarter: 2009Q1

REPORT INFORMATION
  Report Type: 
  Country: None (occurrence: None)
  Receive Date: 20090306
  Receipt Date: 20090302
  Transmission Date: 20090719
  Serious: Yes (Hospitalization)
  Sender: FDA-Public Use
  Company Number: US-MERCK-0902USA04265

PATIENT
  Age: 47 Year
  Sex: Female

DRUGS (3)
  1. EMEND [Suspect]
     Indication: PROPHYLAXIS OF NAUSEA AND VOMITING
     Route: 048
     Dates: start: 20090115, end: 20090115
  2. FENTANYL [Concomitant]
     Route: 065
  3. VERSED [Concomitant]
     Route: 065

REACTIONS (8)
  - ADVERSE DRUG REACTION [None]
  - CHOLINERGIC SYNDROME [None]
  - DEPRESSED LEVEL OF CONSCIOUSNESS [None]
  - DYSKINESIA [None]
  - HEMIPARESIS [None]
  - MYDRIASIS [None]
  - PERONEAL NERVE PALSY [None]
  - POSTURING [None]
